FAERS Safety Report 12309047 (Version 1)
Quarter: 2016Q2

REPORT INFORMATION
  Report Type: Spontaneous
  Country: US (occurrence: US)
  Receive Date: 20160427
  Receipt Date: 20160427
  Transmission Date: 20160815
  Serious: No
  Sender: FDA-Public Use
  Company Number: US-AMGEN-USASP2016051430

PATIENT
  Age: 67 Year
  Sex: Female

DRUGS (1)
  1. ENBREL [Suspect]
     Active Substance: ETANERCEPT
     Indication: PSORIATIC ARTHROPATHY
     Dosage: 50 MG, QWK
     Route: 065

REACTIONS (10)
  - Incorrect product storage [Unknown]
  - Limb discomfort [Unknown]
  - Pain [Unknown]
  - Fear [Unknown]
  - Plantar fasciitis [Unknown]
  - Headache [Unknown]
  - Pruritus [Unknown]
  - Fall [Unknown]
  - Drug dose omission [Unknown]
  - Injection site pain [Unknown]
